FAERS Safety Report 8948712 (Version 2)
Quarter: 2013Q1

REPORT INFORMATION
  Report Type: Spontaneous
  Country: US (occurrence: US)
  Receive Date: 20121206
  Receipt Date: 20130110
  Transmission Date: 20140127
  Serious: Yes (Other)
  Sender: FDA-Public Use
  Company Number: PHEH2012US023462

PATIENT
  Sex: Male

DRUGS (6)
  1. DIOVAN [Suspect]
     Indication: HYPERTENSION
     Dosage: 320 MG, QD
     Route: 048
  2. CLONIDINE HCL [Concomitant]
  3. SPIRONOLACTONE W/HYDROCHLOROTHIAZIDE [Concomitant]
  4. REFENESEN [Concomitant]
     Indication: LUNG DISORDER
  5. TEMAZEPAM [Concomitant]
     Indication: SLEEP DISORDER
  6. CARVEDILOL [Concomitant]

REACTIONS (5)
  - Chronic obstructive pulmonary disease [Unknown]
  - Dyspnoea [Unknown]
  - Prostatomegaly [Unknown]
  - Gait disturbance [Unknown]
  - Wrong technique in drug usage process [Unknown]
